FAERS Safety Report 6731807-3 (Version None)
Quarter: 2010Q2

REPORT INFORMATION
  Report Type: 
  Country: None (occurrence: None)
  Receive Date: 20100519
  Receipt Date: 20100508
  Transmission Date: 20101027
  Serious: Yes (Other)
  Sender: FDA-Public Use
  Company Number: US-PFIZER INC-2010058045

PATIENT
  Age: 84 Year
  Sex: Female
  Weight: 92.971 kg

DRUGS (3)
  1. XANAX [Suspect]
     Indication: PANIC ATTACK
     Dosage: 0.5 MG, UNK
     Route: 048
     Dates: start: 20081101
  2. CLONIDINE [Suspect]
     Dosage: UNK
  3. SITAGLIPTIN PHOSPHATE [Concomitant]
     Indication: DIABETES MELLITUS
     Dosage: UNK

REACTIONS (12)
  - BLOOD PRESSURE DECREASED [None]
  - BURNING SENSATION [None]
  - CIRCULATORY COLLAPSE [None]
  - DRUG DEPENDENCE [None]
  - DYSPNOEA [None]
  - EAR DISCOMFORT [None]
  - FATIGUE [None]
  - FEELING ABNORMAL [None]
  - IMPAIRED DRIVING ABILITY [None]
  - INSOMNIA [None]
  - MALAISE [None]
  - PARAESTHESIA [None]
